FAERS Safety Report 16809583 (Version 1)
Quarter: 2019Q3

REPORT INFORMATION
  Report Type: Spontaneous
  Country: US (occurrence: US)
  Receive Date: 20190913
  Receipt Date: 20190913
  Transmission Date: 20191005
  Serious: Yes (Other)
  Sender: FDA-Public Use
  Company Number: None

PATIENT
  Age: 68 Year
  Sex: Male
  Weight: 98.43 kg

DRUGS (5)
  1. METORPOLOL [Concomitant]
     Active Substance: METOPROLOL
     Dates: start: 20170101
  2. SYNJARDY [Suspect]
     Active Substance: EMPAGLIFLOZIN\METFORMIN HYDROCHLORIDE
     Indication: DIABETES MELLITUS
     Route: 048
     Dates: start: 20190828
  3. ROSUVASTATIN. [Concomitant]
     Active Substance: ROSUVASTATIN
  4. IRBESARTAN. [Concomitant]
     Active Substance: IRBESARTAN
     Dates: start: 20170101
  5. FUROSEMIDE. [Concomitant]
     Active Substance: FUROSEMIDE
     Dates: start: 20170101

REACTIONS (1)
  - Hyperglycaemia [None]

NARRATIVE: CASE EVENT DATE: 20190909
